FAERS Safety Report 23490792 (Version 1)
Quarter: 2024Q1

REPORT INFORMATION
  Report Type: Spontaneous
  Country: US (occurrence: None)
  Receive Date: 20240206
  Receipt Date: 20240206
  Transmission Date: 20240410
  Serious: No
  Sender: FDA-Public Use
  Company Number: US-ROCHE-3296208

PATIENT
  Age: 109 Year
  Sex: Male

DRUGS (2)
  1. NUTROPIN AQ [Suspect]
     Active Substance: SOMATROPIN
     Indication: Hypopituitarism
     Dosage: DAILY
     Route: 058
     Dates: start: 20230224
  2. NUTROPIN AQ [Suspect]
     Active Substance: SOMATROPIN

REACTIONS (4)
  - Mass [Unknown]
  - Pain [Unknown]
  - Injection site pain [Unknown]
  - Swelling [Unknown]

NARRATIVE: CASE EVENT DATE: 20230227
